FAERS Safety Report 8264254-6 (Version None)
Quarter: 2012Q2

REPORT INFORMATION
  Report Type: 
  Country: None (occurrence: None)
  Receive Date: 20120406
  Receipt Date: 20120330
  Transmission Date: 20120825
  Serious: Yes (Other)
  Sender: FDA-Public Use
  Company Number: US-PFIZER INC-2012081675

PATIENT
  Sex: Male
  Weight: 104 kg

DRUGS (3)
  1. PROGRAF [Concomitant]
     Dosage: UNK
  2. RAPAMUNE [Suspect]
     Indication: STEM CELL TRANSPLANT
  3. RAPAMUNE [Suspect]
     Indication: LYMPHOMA
     Dosage: 4 MG, 1X/DAY
     Route: 048
     Dates: start: 20111231

REACTIONS (4)
  - HEADACHE [None]
  - PERIORBITAL OEDEMA [None]
  - ANAEMIA [None]
  - SINUS CONGESTION [None]
